FAERS Safety Report 7239312-5 (Version None)
Quarter: 2011Q1

REPORT INFORMATION
  Report Type: 
  Country: None (occurrence: None)
  Receive Date: 20110121
  Receipt Date: 20110118
  Transmission Date: 20110831
  Serious: Yes (Hospitalization)
  Sender: FDA-Public Use
  Company Number: US-CEPHALON-2011000241

PATIENT
  Sex: Male
  Weight: 63 kg

DRUGS (19)
  1. TREANDA [Suspect]
     Indication: NON-HODGKIN'S LYMPHOMA
     Route: 041
     Dates: start: 20110111
  2. LORATADINE AND PSEUDOEPHEDRINE SULFATE [Concomitant]
  3. LISINOPRIL [Concomitant]
  4. ONDANSETRON [Concomitant]
  5. SUCRALFATE [Concomitant]
  6. CLONAZEPAM [Concomitant]
  7. MEMANTINE [Concomitant]
  8. KLOR-CON [Concomitant]
  9. FAMOTIDINE [Concomitant]
  10. ASPIRIN [Concomitant]
  11. CLOPIDOGREL [Concomitant]
  12. LORAZEPAM [Concomitant]
  13. ALLOPURINOL [Concomitant]
  14. LASIX [Concomitant]
  15. ROSUVASTATIN [Concomitant]
  16. ATENOLOL [Concomitant]
  17. PROMETHAZINE [Concomitant]
  18. RITUXAN [Suspect]
     Indication: NON-HODGKIN'S LYMPHOMA
  19. MECLIZINE [Concomitant]

REACTIONS (1)
  - LEFT VENTRICULAR DYSFUNCTION [None]
